FAERS Safety Report 5215559-4 (Version None)
Quarter: 2007Q1

REPORT INFORMATION
  Report Type: 
  Country: None (occurrence: None)
  Receive Date: 20070123
  Receipt Date: 20070112
  Transmission Date: 20070707
  Serious: Yes (Hospitalization)
  Sender: FDA-Public Use
  Company Number: PHBS2007CH00853

PATIENT
  Age: 55 Year
  Sex: Female

DRUGS (11)
  1. LIORESAL [Suspect]
     Indication: PARAPLEGIA
     Dosage: 150 MG/DAY
     Route: 065
     Dates: start: 20030101
  2. TOFRANIL [Suspect]
     Indication: PARAPLEGIA
     Dosage: 25 MG/DAY
     Route: 065
  3. DIPIPERON [Suspect]
     Indication: SLEEP DISORDER
     Dosage: 10 MG/DAY
     Route: 065
     Dates: end: 20060925
  4. METHADON STREULI [Suspect]
     Indication: MENTAL DISORDER
     Dosage: 3 ML/DAY
     Route: 065
  5. FOSAMAX [Suspect]
     Indication: OSTEOPOROSIS
     Dosage: 70 MG/WEEK
     Route: 065
  6. MYDOCALM [Suspect]
     Indication: PARAPLEGIA
     Dosage: 300 MG/DAY
     Route: 065
     Dates: end: 20060925
  7. ADALAT [Suspect]
     Route: 065
  8. ZOLPIDEM TARTRATE [Concomitant]
     Indication: SLEEP DISORDER
     Dosage: 10 MG/DAY
     Route: 065
     Dates: end: 20060925
  9. NOVALGIN [Concomitant]
     Indication: PARAPLEGIA
     Dosage: 1000 MG/DAY
     Route: 065
     Dates: end: 20060925
  10. BRUFEN [Concomitant]
     Indication: PARAPLEGIA
     Dosage: 400 MG/DAY
     Route: 065
     Dates: end: 20060925
  11. NEXIUM [Concomitant]
     Dosage: 20 MG/DAY
     Route: 065

REACTIONS (3)
  - ELECTROENCEPHALOGRAM ABNORMAL [None]
  - GRAND MAL CONVULSION [None]
  - MUSCLE SPASMS [None]
